FAERS Safety Report 20666992 (Version 1)
Quarter: 2022Q2

REPORT INFORMATION
  Report Type: Spontaneous
  Country: FR (occurrence: FR)
  Receive Date: 20220404
  Receipt Date: 20220404
  Transmission Date: 20220721
  Serious: Yes (Other)
  Sender: FDA-Public Use
  Company Number: FR-AFSSAPS-AVPO20220036

PATIENT
  Age: 31 Year
  Sex: Female
  Weight: 83 kg

DRUGS (5)
  1. FLUOXETINE [Suspect]
     Active Substance: FLUOXETINE HYDROCHLORIDE
     Indication: Product used for unknown indication
     Dosage: 20 MILLIGRAM (6 TABLETS)
     Route: 048
     Dates: start: 20220112, end: 20220112
  2. PRAZEPAM [Suspect]
     Active Substance: PRAZEPAM
     Indication: Product used for unknown indication
     Dosage: 10 MILLIGRAM (6 TABLETS)
     Route: 048
     Dates: start: 20220112, end: 20220112
  3. OXAZEPAM [Suspect]
     Active Substance: OXAZEPAM
     Indication: Product used for unknown indication
     Dosage: 10 MILLIGRAM (15 TABLETS)
     Route: 048
     Dates: start: 20220112, end: 20220112
  4. ALCOHOL [Suspect]
     Active Substance: ALCOHOL
     Indication: Product used for unknown indication
     Dosage: 1 LITER (1 LITER OF BEER)
     Route: 048
     Dates: start: 20220112, end: 20220112
  5. NEURONTIN [Suspect]
     Active Substance: GABAPENTIN
     Indication: Product used for unknown indication
     Dosage: 100 MILLIGRAM (12 TABLETS)
     Route: 048
     Dates: start: 20220112, end: 20220112

REACTIONS (2)
  - Poisoning deliberate [Recovered/Resolved]
  - Drug abuse [Recovered/Resolved]

NARRATIVE: CASE EVENT DATE: 20220112
